FAERS Safety Report 13213899 (Version 1)
Quarter: 2017Q1

REPORT INFORMATION
  Report Type: Spontaneous
  Country: US (occurrence: US)
  Receive Date: 20170210
  Receipt Date: 20170210
  Transmission Date: 20170428
  Serious: Yes (Death)
  Sender: FDA-Public Use
  Company Number: US-SA-2017SA023190

PATIENT
  Age: 70 Year
  Sex: Female

DRUGS (4)
  1. BORTEZOMIB [Suspect]
     Active Substance: BORTEZOMIB
     Indication: AMYLOIDOSIS
     Route: 065
  2. FILGRASTIM [Suspect]
     Active Substance: FILGRASTIM
     Indication: STEM CELL TRANSPLANT
     Route: 065
  3. PLERIXAFOR [Suspect]
     Active Substance: PLERIXAFOR
     Indication: STEM CELL TRANSPLANT
     Route: 065
  4. MELPHALAN [Suspect]
     Active Substance: MELPHALAN
     Route: 065

REACTIONS (1)
  - Death [Fatal]
